FAERS Safety Report 4974666-1 (Version None)
Quarter: 2006Q2

REPORT INFORMATION
  Report Type: 
  Country: None (occurrence: None)
  Receive Date: 20060417
  Receipt Date: 20060412
  Transmission Date: 20061013
  Serious: Yes (Life-Threatening, Hospitalization)
  Sender: FDA-Public Use
  Company Number: FR-MERCK-0604FRA00049

PATIENT
  Age: 65 Year
  Sex: Male
  Weight: 72 kg

DRUGS (1)
  1. VIOXX [Suspect]
     Indication: OSTEOARTHRITIS
     Route: 048
     Dates: start: 20040501, end: 20040701

REACTIONS (2)
  - ATRIOVENTRICULAR BLOCK COMPLETE [None]
  - CORONARY ARTERY STENOSIS [None]
